FAERS Safety Report 20647628 (Version 3)
Quarter: 2022Q2

REPORT INFORMATION
  Report Type: Spontaneous
  Country: US (occurrence: US)
  Receive Date: 20220329
  Receipt Date: 20220531
  Transmission Date: 20220721
  Serious: Yes (Other)
  Sender: FDA-Public Use
  Company Number: US-BEH-2022143368

PATIENT
  Age: 4 Year
  Sex: Male

DRUGS (8)
  1. IDELVION [Suspect]
     Active Substance: COAGULATION FACTOR IX RECOMBINANT HUMAN
     Indication: Factor IX deficiency
     Dosage: 1250 INTERNATIONAL UNIT, QOW AND PRN
     Route: 042
     Dates: start: 20210107
  2. IDELVION [Suspect]
     Active Substance: COAGULATION FACTOR IX RECOMBINANT HUMAN
     Indication: Factor IX deficiency
     Dosage: 1250 INTERNATIONAL UNIT, QOW AND PRN
     Route: 042
     Dates: start: 20210107
  3. IDELVION [Suspect]
     Active Substance: COAGULATION FACTOR IX RECOMBINANT HUMAN
     Dosage: UNK, PRN
     Route: 042
     Dates: start: 20220517
  4. IDELVION [Suspect]
     Active Substance: COAGULATION FACTOR IX RECOMBINANT HUMAN
     Dosage: UNK, PRN
     Route: 042
     Dates: start: 20220517
  5. IDELVION [Suspect]
     Active Substance: COAGULATION FACTOR IX RECOMBINANT HUMAN
     Dosage: 1250 INTERNATIONAL UNIT, QOW
     Route: 042
     Dates: start: 202110
  6. IDELVION [Suspect]
     Active Substance: COAGULATION FACTOR IX RECOMBINANT HUMAN
     Dosage: 1250 INTERNATIONAL UNIT, QOW
     Route: 042
     Dates: start: 202110
  7. IDELVION [Suspect]
     Active Substance: COAGULATION FACTOR IX RECOMBINANT HUMAN
     Dosage: 1250 INTERNATIONAL UNIT, PRN
     Route: 042
     Dates: start: 202110
  8. IDELVION [Suspect]
     Active Substance: COAGULATION FACTOR IX RECOMBINANT HUMAN
     Dosage: 1250 INTERNATIONAL UNIT, PRN
     Route: 042
     Dates: start: 202110

REACTIONS (8)
  - Haemorrhage [Recovered/Resolved]
  - Haematoma [Unknown]
  - Haematoma [Recovered/Resolved]
  - No adverse event [Unknown]
  - Therapy change [Unknown]
  - Head injury [Unknown]
  - Traumatic haemorrhage [Recovered/Resolved]
  - Haemarthrosis [Unknown]

NARRATIVE: CASE EVENT DATE: 20220314
